FAERS Safety Report 9161970 (Version 2)
Quarter: 2013Q1

REPORT INFORMATION
  Report Type: Spontaneous
  Country: PL (occurrence: None)
  Receive Date: 20130224
  Receipt Date: 20130326
  Transmission Date: 20140127
  Serious: Yes (Other)
  Sender: FDA-Public Use
  Company Number: 2013P1002416

PATIENT
  Age: 49 Year
  Sex: 0

DRUGS (6)
  1. LORAZEPAM [Suspect]
     Indication: SUICIDE ATTEMPT
  2. PHENOBARBITAL [Suspect]
     Indication: SUICIDE ATTEMPT
  3. DOXEPIN [Suspect]
     Indication: SUICIDE ATTEMPT
  4. DOXEPIN [Suspect]
     Indication: SUICIDE ATTEMPT
  5. VALIUM [Suspect]
     Indication: SUICIDE ATTEMPT
  6. TRAMAL [Concomitant]

REACTIONS (6)
  - Coma [None]
  - Pupils unequal [None]
  - Toxicity to various agents [None]
  - Suicide attempt [None]
  - Incorrect dose administered [None]
  - Drug interaction [None]
